FAERS Safety Report 7128337-6 (Version None)
Quarter: 2010Q4

REPORT INFORMATION
  Report Type: 
  Country: None (occurrence: None)
  Receive Date: 20101130
  Receipt Date: 20101119
  Transmission Date: 20110411
  Serious: Yes (Other)
  Sender: FDA-Public Use
  Company Number: FR-NOVOPROD-318876

PATIENT
  Age: 73 Year
  Sex: Male

DRUGS (3)
  1. VICTOZA [Suspect]
     Indication: TYPE 2 DIABETES MELLITUS
     Dosage: UNK
     Route: 065
     Dates: start: 20101014, end: 20101019
  2. METORMIN [Concomitant]
     Indication: DIABETES MELLITUS
  3. DIAMICRON [Concomitant]
     Indication: DIABETES MELLITUS

REACTIONS (1)
  - PULMONARY EMBOLISM [None]
